FAERS Safety Report 9230109 (Version 1)
Quarter: 2013Q2

REPORT INFORMATION
  Report Type: Spontaneous
  Country: US (occurrence: US)
  Receive Date: 20130415
  Receipt Date: 20130415
  Transmission Date: 20140414
  Serious: No
  Sender: FDA-Public Use
  Company Number: US-BAYER-2013-044359

PATIENT
  Age: 55 Year
  Sex: Male

DRUGS (2)
  1. STAXYN (FDT/ODT) [Suspect]
     Indication: ERECTILE DYSFUNCTION
     Dosage: ONCE A WEEK
     Dates: start: 201208
  2. SYNTHROID [Concomitant]
     Dosage: 0.15 MG, UNK
     Route: 048
     Dates: start: 1986

REACTIONS (1)
  - Drug ineffective [Not Recovered/Not Resolved]
